FAERS Safety Report 4362870-5 (Version None)
Quarter: 2004Q2

REPORT INFORMATION
  Report Type: 
  Country: None (occurrence: None)
  Receive Date: 20040517
  Receipt Date: 20040322
  Transmission Date: 20050107
  Serious: No
  Sender: FDA-Public Use
  Company Number: S04-USA-01837-01

PATIENT
  Age: 76 Year
  Sex: Female

DRUGS (9)
  1. NAMENDA [Suspect]
     Indication: DEMENTIA ALZHEIMER'S TYPE
     Dosage: 5 MG QD PO
     Route: 048
     Dates: start: 20040310, end: 20040316
  2. NAMENDA [Suspect]
     Indication: DEMENTIA ALZHEIMER'S TYPE
     Dosage: 5 MG BID PO
     Route: 048
     Dates: start: 20040317
  3. ARICEPT [Concomitant]
  4. ADALAT CC [Concomitant]
  5. ZIAC [Concomitant]
  6. POTASSIUM [Concomitant]
  7. VITAMIN E [Concomitant]
  8. VITAMIN B-12 [Concomitant]
  9. ADVIL [Concomitant]

REACTIONS (1)
  - CONFUSIONAL STATE [None]
